FAERS Safety Report 5201835-8 (Version None)
Quarter: 2006Q4

REPORT INFORMATION
  Report Type: 
  Country: None (occurrence: None)
  Receive Date: 20061003
  Receipt Date: 20060530
  Transmission Date: 20070319
  Serious: Yes (Other)
  Sender: FDA-Public Use
  Company Number: K200600728

PATIENT
  Age: 32 Year
  Sex: Female
  Weight: 63.5 kg

DRUGS (1)
  1. SONATA [Suspect]
     Indication: INSOMNIA
     Dosage: 5 MG, QHS, ORAL
     Route: 048
     Dates: start: 20050518, end: 20060518

REACTIONS (2)
  - AGITATION [None]
  - HALLUCINATION [None]
